FAERS Safety Report 7569655-7 (Version None)
Quarter: 2011Q2

REPORT INFORMATION
  Report Type: 
  Country: None (occurrence: None)
  Receive Date: 20110617
  Receipt Date: 20110331
  Transmission Date: 20111010
  Serious: Yes (Hospitalization, Other)
  Sender: FDA-Public Use
  Company Number: DSA_46916_2011

PATIENT
  Sex: Male

DRUGS (5)
  1. ACENOCOUMAROL (ACENOCOUMAROL) [Suspect]
     Indication: PRODUCT USED FOR UNKNOWN INDICATION
     Dosage: DF
  2. DILTIAZEM HYDROCHLORIDE [Suspect]
     Indication: HYPERTENSION
     Dosage: 1 DF QD ORAL
     Route: 048
     Dates: start: 20070109
  3. PREVISCAN /00789001/ (PREVISCAN - FLUINDIONE) (NOT SPECIFIED) [Suspect]
     Indication: COR PULMONALE CHRONIC
     Dosage: 1 DF QD ORAL
     Route: 048
     Dates: start: 20070109, end: 20070101
  4. INDAPAMIDE [Suspect]
     Indication: HYPERTENSION
     Dosage: 1.5 MG QD ORAL
     Route: 048
     Dates: start: 20070109, end: 20070413
  5. VALSARTAN  AND HYDROCHLOROTHIAZIDE [Suspect]
     Indication: HYPERTENSION
     Dosage: DF ORAL
     Route: 048
     Dates: start: 20021201, end: 20070413

REACTIONS (6)
  - RENAL TUBULAR NECROSIS [None]
  - TUBULOINTERSTITIAL NEPHRITIS [None]
  - RENAL FAILURE CHRONIC [None]
  - DIALYSIS [None]
  - PRURITUS [None]
  - SKIN LESION [None]
